FAERS Safety Report 14222958 (Version 1)
Quarter: 2017Q4

REPORT INFORMATION
  Report Type: Report from Study
  Country: US (occurrence: US)
  Receive Date: 20171125
  Receipt Date: 20171125
  Transmission Date: 20180321
  Serious: Yes (Other)
  Sender: FDA-Public Use
  Company Number: US-ROCHE-2028928

PATIENT
  Age: 24 Year
  Sex: Male

DRUGS (2)
  1. MYCOPHENOLATE MOFETIL. [Suspect]
     Active Substance: MYCOPHENOLATE MOFETIL
     Indication: LUPUS NEPHRITIS
  2. MYCOPHENOLATE MOFETIL. [Suspect]
     Active Substance: MYCOPHENOLATE MOFETIL
     Indication: SYSTEMIC LUPUS ERYTHEMATOSUS
     Dosage: ^TAKE 2 TABS BID^
     Route: 048

REACTIONS (4)
  - Intentional product use issue [Unknown]
  - Off label use [Unknown]
  - Urine protein/creatinine ratio abnormal [Unknown]
  - Protein total increased [Unknown]

NARRATIVE: CASE EVENT DATE: 20170905
